FAERS Safety Report 21213257 (Version 1)
Quarter: 2022Q3

REPORT INFORMATION
  Report Type: Spontaneous
  Country: CN (occurrence: CN)
  Receive Date: 20220815
  Receipt Date: 20220815
  Transmission Date: 20221027
  Serious: Yes (Hospitalization)
  Sender: FDA-Public Use
  Company Number: CN-PFIZER INC-PV202200041916

PATIENT
  Age: 57 Year
  Sex: Female
  Weight: 47 kg

DRUGS (1)
  1. EPIRUBICIN HYDROCHLORIDE [Suspect]
     Active Substance: EPIRUBICIN HYDROCHLORIDE
     Indication: Breast cancer
     Dosage: 130.000 MG, EVERY 3 WEEKS
     Route: 041
     Dates: start: 20220803, end: 20220803

REACTIONS (1)
  - Eosinopenia [Unknown]

NARRATIVE: CASE EVENT DATE: 20220804
